FAERS Safety Report 23777975 (Version 2)
Quarter: 2024Q2

REPORT INFORMATION
  Report Type: Spontaneous
  Country: FR (occurrence: FR)
  Receive Date: 20240424
  Receipt Date: 20240506
  Transmission Date: 20240716
  Serious: Yes (Other)
  Sender: FDA-Public Use
  Company Number: FR-EXELIXIS-CABO-24076586

PATIENT
  Age: 53 Year
  Sex: Male
  Weight: 88 kg

DRUGS (3)
  1. CABOMETYX [Suspect]
     Active Substance: CABOZANTINIB S-MALATE
     Indication: Product used for unknown indication
     Dosage: UNK
  2. NIVOLUMAB [Suspect]
     Active Substance: NIVOLUMAB
     Indication: Renal cancer
     Dosage: 3 MG/KG, Q3WEEKS
     Route: 042
     Dates: start: 20210805
  3. NIVOLUMAB [Suspect]
     Active Substance: NIVOLUMAB
     Dosage: 480 MG, EVERY MONTH
     Route: 042
     Dates: start: 20210805, end: 20231128

REACTIONS (6)
  - Transplant rejection [Unknown]
  - Hyperthyroidism [Recovered/Resolved]
  - Malignant neoplasm progression [Recovering/Resolving]
  - Melanocytic naevus [Recovered/Resolved]
  - Cerebral cyst [Not Recovered/Not Resolved]
  - Off label use [Unknown]

NARRATIVE: CASE EVENT DATE: 20230217
